FAERS Safety Report 23787000 (Version 1)
Quarter: 2024Q2

REPORT INFORMATION
  Report Type: Spontaneous
  Country: US (occurrence: US)
  Receive Date: 20240426
  Receipt Date: 20240426
  Transmission Date: 20240716
  Serious: No
  Sender: FDA-Public Use
  Company Number: US-AMGEN-USASP2024081807

PATIENT
  Age: 76 Year
  Sex: Female

DRUGS (2)
  1. REPATHA [Suspect]
     Active Substance: EVOLOCUMAB
     Indication: Blood cholesterol increased
     Dosage: UNK, ONCE EVERY 28 DAYS
     Route: 065
     Dates: start: 20240408
  2. UNSPECIFIED INGREDIENT [Concomitant]
     Active Substance: UNSPECIFIED INGREDIENT
     Indication: Blood cholesterol increased
     Dosage: ONCE EVERY 28 DAYS
     Route: 065
     Dates: start: 20240408

REACTIONS (7)
  - Back pain [Not Recovered/Not Resolved]
  - Vision blurred [Unknown]
  - Arthritis [Unknown]
  - Burning sensation [Unknown]
  - Arthralgia [Unknown]
  - Irritability [Unknown]
  - Off label use [Unknown]

NARRATIVE: CASE EVENT DATE: 20240401
